FAERS Safety Report 6652567-0 (Version None)
Quarter: 2010Q1

REPORT INFORMATION
  Report Type: 
  Country: None (occurrence: None)
  Receive Date: 20100325
  Receipt Date: 20100325
  Transmission Date: 20100710
  Serious: No
  Sender: FDA-Public Use
  Company Number: None

PATIENT
  Sex: Male

DRUGS (1)
  1. CELECOXIB [Suspect]

REACTIONS (3)
  - HYPOTENSION [None]
  - HYPOXIA [None]
  - TACHYPNOEA [None]
